FAERS Safety Report 12567139 (Version 1)
Quarter: 2016Q3

REPORT INFORMATION
  Report Type: Report from Study
  Country: LS (occurrence: LS)
  Receive Date: 20160718
  Receipt Date: 20160718
  Transmission Date: 20161109
  Serious: Yes (Death, Hospitalization, Other)
  Sender: FDA-Public Use
  Company Number: LS-BRISTOL-MYERS SQUIBB COMPANY-13114491

PATIENT
  Age: 26 Year
  Sex: Male

DRUGS (3)
  1. EFAVIRENZ [Suspect]
     Active Substance: EFAVIRENZ
     Indication: HIV INFECTION
     Dosage: UNK
     Route: 048
     Dates: start: 20040826, end: 20050908
  2. STAVUDINE. [Suspect]
     Active Substance: STAVUDINE
     Indication: HIV INFECTION
     Dosage: UNK
     Route: 048
     Dates: start: 20040826, end: 20050908
  3. LAMIVUDINE. [Suspect]
     Active Substance: LAMIVUDINE
     Indication: HIV INFECTION
     Dosage: UNK
     Route: 048
     Dates: start: 20040826, end: 20050908

REACTIONS (3)
  - Liver function test increased [Not Recovered/Not Resolved]
  - Meningitis tuberculous [Fatal]
  - Tuberculoma of central nervous system [Fatal]

NARRATIVE: CASE EVENT DATE: 20050627
